FAERS Safety Report 9819215 (Version 1)
Quarter: 2014Q1

REPORT INFORMATION
  Report Type: Spontaneous
  Country: JP (occurrence: JP)
  Receive Date: 20140115
  Receipt Date: 20140115
  Transmission Date: 20141002
  Serious: Yes (Death)
  Sender: FDA-Public Use
  Company Number: JP-AMGEN-JPNSP2014002708

PATIENT
  Age: 90 Year
  Sex: Female

DRUGS (5)
  1. PRALIA [Suspect]
     Indication: OSTEOPOROSIS
     Dosage: ONLY ONCE
     Route: 058
     Dates: start: 20130708, end: 20130708
  2. WARFARIN [Concomitant]
     Dosage: UNKNOWN
     Route: 065
  3. PARIET [Concomitant]
     Dosage: UNKNOWN
     Route: 065
  4. GASMOTIN [Concomitant]
     Dosage: UNKNOWN
     Route: 065
  5. CONIEL [Concomitant]
     Dosage: UNKNOWN
     Route: 065

REACTIONS (1)
  - Cardiac failure [Fatal]
